FAERS Safety Report 25816417 (Version 1)
Quarter: 2025Q3

REPORT INFORMATION
  Report Type: Spontaneous
  Country: US (occurrence: US)
  Receive Date: 20250918
  Receipt Date: 20250918
  Transmission Date: 20251020
  Serious: No
  Sender: LEADING PHARMA
  Company Number: US-LEADINGPHARMA-US-2025LEASPO00157

PATIENT

DRUGS (2)
  1. HYDROCHLOROTHIAZIDE [Suspect]
     Active Substance: HYDROCHLOROTHIAZIDE
     Indication: Fluid retention
     Route: 065
  2. POTASSIUM [Suspect]
     Active Substance: POTASSIUM
     Indication: Fluid retention
     Route: 065

REACTIONS (3)
  - Lacrimation increased [Unknown]
  - Swelling face [Unknown]
  - Hypersensitivity [Unknown]
